FAERS Safety Report 5239705-1 (Version None)
Quarter: 2007Q1

REPORT INFORMATION
  Report Type: 
  Country: None (occurrence: None)
  Receive Date: 20070216
  Receipt Date: 20070209
  Transmission Date: 20070707
  Serious: Yes (Hospitalization, Disabling, Other)
  Sender: FDA-Public Use
  Company Number: JP-SANOFI-SYNTHELABO-F01200600657

PATIENT
  Sex: Male
  Weight: 95 kg

DRUGS (4)
  1. FLUOROURACIL [Suspect]
     Dosage: 750 MG/BODY=367.6 MG/M2 IN BOLUS THEN 1000 MG/BODY=490.2 MG/M2 AS CONTINUOUS INFUSION, D1+2
     Route: 042
     Dates: start: 20051108, end: 20051109
  2. OXALIPLATIN [Suspect]
     Indication: COLON CANCER
     Route: 042
     Dates: start: 20051108, end: 20051108
  3. WARFARIN SODIUM [Concomitant]
     Indication: ATRIAL FIBRILLATION
     Dosage: 3.5 MG
     Route: 048
     Dates: start: 20050725, end: 20051111
  4. LEUCOVORIN CALCIUM [Suspect]
     Route: 042
     Dates: start: 20051108, end: 20051109

REACTIONS (3)
  - CEREBRAL INFARCTION [None]
  - DEHYDRATION [None]
  - NEUTROPENIA [None]
